FAERS Safety Report 7500036-8 (Version None)
Quarter: 2011Q2

REPORT INFORMATION
  Report Type: 
  Country: None (occurrence: None)
  Receive Date: 20110524
  Receipt Date: 20110313
  Transmission Date: 20111010
  Serious: No
  Sender: FDA-Public Use
  Company Number: US-NOVEN-11US002067

PATIENT
  Sex: Female
  Weight: 24.943 kg

DRUGS (2)
  1. DAYTRANA [Suspect]
     Indication: ATTENTION DEFICIT/HYPERACTIVITY DISORDER
     Dosage: 10 MG, QD
     Route: 062
     Dates: start: 20110302
  2. NONE [Concomitant]

REACTIONS (5)
  - PRODUCT QUALITY ISSUE [None]
  - APPLICATION SITE ERYTHEMA [None]
  - OFF LABEL USE [None]
  - DRUG ADMINISTRATION ERROR [None]
  - ACCIDENTAL EXPOSURE [None]
